FAERS Safety Report 5766852-8 (Version None)
Quarter: 2008Q2

REPORT INFORMATION
  Report Type: 
  Country: None (occurrence: None)
  Receive Date: 20080609
  Receipt Date: 20080529
  Transmission Date: 20081010
  Serious: Yes (Disabling)
  Sender: FDA-Public Use
  Company Number: GXKR2008US04894

PATIENT
  Age: 51 Year
  Sex: Female

DRUGS (7)
  1. LEFLUNOMIDE [Suspect]
     Indication: NEPHROPATHY
  2. ANTITHYMOCYTE IMMUNOGLOBULIN (ANTITHYMOCYTE IMMUNOGLOBULIN) [Concomitant]
  3. TACROLIMUS [Concomitant]
  4. MYCOPHENOLATE MOFETIL [Concomitant]
  5. CORTICOSTEROIDS (NO INGREDIENTS/SUBSTANCES) [Concomitant]
  6. RITUXAN [Concomitant]
  7. IMMUNE GLOBULIN INTRAVENOUS (HUMAN) [Concomitant]

REACTIONS (5)
  - DIALYSIS [None]
  - ECCHYMOSIS [None]
  - GRAFT LOSS [None]
  - THROMBOCYTOPENIA [None]
  - THROMBOTIC MICROANGIOPATHY [None]
